FAERS Safety Report 10158838 (Version 1)
Quarter: 2014Q2

REPORT INFORMATION
  Report Type: Spontaneous
  Country: US (occurrence: US)
  Receive Date: 20140508
  Receipt Date: 20140508
  Transmission Date: 20141212
  Serious: No
  Sender: FDA-Public Use
  Company Number: US-BIOGENIDEC-2014BI038961

PATIENT
  Age: 69 Year
  Sex: Male

DRUGS (6)
  1. TECFIDERA [Suspect]
     Indication: MULTIPLE SCLEROSIS
     Route: 048
  2. ATORVASTATIN CALCIUM [Concomitant]
  3. BIOFLEX [Concomitant]
  4. NEXIUM [Concomitant]
  5. VITAMIN B COMPLEX [Concomitant]
  6. WELLBUTRIN XL [Concomitant]

REACTIONS (1)
  - Night sweats [Unknown]
